FAERS Safety Report 21576190 (Version 2)
Quarter: 2023Q2

REPORT INFORMATION
  Report Type: Report from Study
  Country: US (occurrence: US)
  Receive Date: 20221110
  Receipt Date: 20230421
  Transmission Date: 20230722
  Serious: No
  Sender: FDA-Public Use
  Company Number: US-KYOWAKIRIN-2022BKK017355

PATIENT

DRUGS (1)
  1. MOGAMULIZUMAB [Suspect]
     Active Substance: MOGAMULIZUMAB
     Indication: Product used for unknown indication
     Dosage: UNK (20 MG/5 ML)
     Route: 042
     Dates: start: 20230216

REACTIONS (2)
  - Skin lesion [Not Recovered/Not Resolved]
  - Nodule [Not Recovered/Not Resolved]
